FAERS Safety Report 14820212 (Version 1)
Quarter: 2018Q2

REPORT INFORMATION
  Report Type: Report from Study
  Country: IE (occurrence: IE)
  Receive Date: 20180427
  Receipt Date: 20180427
  Transmission Date: 20180711
  Serious: Yes (Hospitalization)
  Sender: FDA-Public Use
  Company Number: IE-AMGEN-IRLSL2018055947

PATIENT
  Age: 55 Year
  Sex: Male

DRUGS (10)
  1. MAXOLON [Concomitant]
     Active Substance: METOCLOPRAMIDE HYDROCHLORIDE
     Dosage: 10 MG, TID
     Route: 050
  2. PANCREATIN [Concomitant]
     Active Substance: PANCRELIPASE
     Dosage: 600 MG, QD (TAKES WITH BREAKFAST)
     Route: 050
  3. VALOID [Concomitant]
     Active Substance: CYCLIZINE HYDROCHLORIDE
     Dosage: 50 MG, TID
     Route: 050
  4. PANCREATIN [Concomitant]
     Active Substance: PANCRELIPASE
     Dosage: 300 MG, TID (TO BE TAKEN WITH MEALS)
     Route: 050
  5. NEULASTA [Suspect]
     Active Substance: PEGFILGRASTIM
     Indication: PRODUCT USED FOR UNKNOWN INDICATION
     Dosage: 6 MG, Q2WK (POST CHEMO)
     Route: 058
  6. PANTOPRAZOLE [Concomitant]
     Active Substance: PANTOPRAZOLE
     Dosage: 40 MG, QD
     Route: 050
  7. METFORMIN [Concomitant]
     Active Substance: METFORMIN HYDROCHLORIDE
     Dosage: 850 MG, BID
     Route: 050
  8. PHARMATON [Concomitant]
     Active Substance: MINERALS\VITAMINS
     Dosage: 1 DF, QD (VITAMIN CAPSULE)
  9. PROSURE [Concomitant]
     Dosage: 220 ML, BID (NUTRITIONAL DRINK)
     Route: 050
  10. DEXAMETHASONE. [Concomitant]
     Active Substance: DEXAMETHASONE
     Dosage: 4 MG, BID (TO TAKE FOR 3 DAYS POST CHEMO)
     Route: 050

REACTIONS (1)
  - Diarrhoea [Recovered/Resolved]

NARRATIVE: CASE EVENT DATE: 20180331
